FAERS Safety Report 25623925 (Version 1)
Quarter: 2025Q3

REPORT INFORMATION
  Report Type: Spontaneous
  Country: US (occurrence: US)
  Receive Date: 20250730
  Receipt Date: 20250730
  Transmission Date: 20251021
  Serious: No
  Sender: BridgeBio Pharma
  Company Number: US-BRIDGEBIO-25US001001

PATIENT

DRUGS (2)
  1. ATTRUBY [Suspect]
     Active Substance: ACORAMIDIS HYDROCHLORIDE
     Indication: Cardiac amyloidosis
     Route: 065
     Dates: start: 202501
  2. ATTRUBY [Suspect]
     Active Substance: ACORAMIDIS HYDROCHLORIDE
     Route: 065
     Dates: start: 202501

REACTIONS (2)
  - Blood creatinine increased [Recovered/Resolved]
  - Glomerular filtration rate decreased [Unknown]
